FAERS Safety Report 5346653-5 (Version None)
Quarter: 2007Q2

REPORT INFORMATION
  Report Type: 
  Country: None (occurrence: None)
  Receive Date: 20070605
  Receipt Date: 20070525
  Transmission Date: 20071010
  Serious: Yes (Hospitalization)
  Sender: FDA-Public Use
  Company Number: KR-PFIZER INC-2007042447

PATIENT
  Sex: Male
  Weight: 56 kg

DRUGS (1)
  1. SU-011,248 [Suspect]
     Indication: GASTRIC CANCER
     Route: 048

REACTIONS (1)
  - ASCITES [None]
